FAERS Safety Report 6785481-0 (Version None)
Quarter: 2010Q2

REPORT INFORMATION
  Report Type: 
  Country: None (occurrence: None)
  Receive Date: 20100623
  Receipt Date: 20100614
  Transmission Date: 20101027
  Serious: No
  Sender: FDA-Public Use
  Company Number: 2009BI002659

PATIENT
  Sex: Female

DRUGS (1)
  1. TYSABRI [Suspect]
     Indication: MULTIPLE SCLEROSIS
     Route: 042
     Dates: start: 20081203

REACTIONS (17)
  - ADVERSE DRUG REACTION [None]
  - ASTHENIA [None]
  - BACK PAIN [None]
  - DEHYDRATION [None]
  - FATIGUE [None]
  - FEELING COLD [None]
  - HEADACHE [None]
  - HYPOAESTHESIA [None]
  - HYPOTENSION [None]
  - MUSCLE SPASMS [None]
  - NAUSEA [None]
  - PAIN [None]
  - PARAESTHESIA [None]
  - TRANSIENT ISCHAEMIC ATTACK [None]
  - URINARY TRACT INFECTION [None]
  - VISION BLURRED [None]
  - VOMITING [None]
